FAERS Safety Report 8958293 (Version 1)
Quarter: 2012Q4

REPORT INFORMATION
  Report Type: 
  Country: JP (occurrence: JP)
  Receive Date: 20121211
  Receipt Date: 20121211
  Transmission Date: 20130627
  Serious: Yes (Life-Threatening)
  Sender: FDA-Public Use
  Company Number: JP-009507513-2011SP027064

PATIENT
  Age: 65 Year
  Sex: Male
  Weight: 72 kg

DRUGS (5)
  1. ESLAX [Suspect]
     Indication: NEUROMUSCULAR BLOCKING THERAPY
     Dosage: 50 mg, qd (Bolus)
     Route: 042
     Dates: start: 20110413, end: 20110413
  2. UNASYN (SULTAMICILLIN TOSYLATE) [Concomitant]
     Indication: ANTIBIOTIC PROPHYLAXIS
     Dosage: 1.5 g, UNK (divided dose frequency unknown)
     Route: 042
     Dates: start: 20110413, end: 20110413
  3. XYLOCAINE [Concomitant]
     Indication: LOCAL ANAESTHESIA
     Dosage: 2 ml, UNK (divided dose frequency unknown)
     Route: 049
     Dates: start: 20110413, end: 20110413
  4. PROPOFOL [Concomitant]
     Indication: INDUCTION OF ANAESTHESIA
     Dosage: 70 mg, UNK (divided dose frequency unknown)
     Route: 042
     Dates: start: 20110413, end: 20110413
  5. ULTIVA [Concomitant]
     Indication: INDUCTION OF ANAESTHESIA
     Dosage: 1 microgram per kilogram per minute - 0.2 microgram per kilogram per minute (In two minutes)
     Route: 042
     Dates: start: 20110413, end: 20110413

REACTIONS (6)
  - Arteriospasm coronary [Recovered/Resolved]
  - Electrocardiogram ST segment elevation [Recovered/Resolved]
  - Anaphylactic shock [Recovered/Resolved]
  - Generalised erythema [Recovered/Resolved]
  - Tachycardia [Recovered/Resolved]
  - Hypotension [Recovered/Resolved]
